FAERS Safety Report 4927145-1 (Version None)
Quarter: 2006Q1

REPORT INFORMATION
  Report Type: 
  Country: None (occurrence: None)
  Receive Date: 20060222
  Receipt Date: 20060213
  Transmission Date: 20060701
  Serious: Yes (Other)
  Sender: FDA-Public Use
  Company Number: 2006021981

PATIENT
  Sex: Female

DRUGS (10)
  1. XANAX [Suspect]
     Indication: NERVOUSNESS
     Dosage: 4 MG (1 MG, 4 IN 1 D), UNKNOWN
  2. XANAX [Suspect]
     Indication: PANIC ATTACK
     Dosage: 4 MG (1 MG, 4 IN 1 D), UNKNOWN
  3. LEXAPRO [Concomitant]
  4. LOTREL [Concomitant]
  5. CLONIDINE [Concomitant]
  6. UNIRETIC (HYDROCHLOROTHIAZIDE, MOEXIPRIL HYDROCHLORIDE) [Concomitant]
  7. NITRO (GLYCERYL TRINITRATE) [Concomitant]
  8. NEXIUM [Concomitant]
  9. CLONAZEPAM [Concomitant]
  10. ASTELIN [Concomitant]

REACTIONS (6)
  - BLOOD PRESSURE FLUCTUATION [None]
  - CEREBROVASCULAR ACCIDENT [None]
  - FALL [None]
  - FEAR OF DISEASE [None]
  - HEART RATE DECREASED [None]
  - LOSS OF CONSCIOUSNESS [None]
